FAERS Safety Report 8236856-4 (Version None)
Quarter: 2012Q1

REPORT INFORMATION
  Report Type: 
  Country: None (occurrence: None)
  Receive Date: 20120327
  Receipt Date: 20111129
  Transmission Date: 20120608
  Serious: No
  Sender: FDA-Public Use
  Company Number: US-GLAXOSMITHKLINE-A0955765A

PATIENT
  Sex: Female

DRUGS (2)
  1. LAMICTAL [Suspect]
     Indication: CONVULSION
     Dosage: 50MG PER DAY
     Route: 048
     Dates: start: 20111113, end: 20111122
  2. DILANTIN [Concomitant]

REACTIONS (6)
  - DIZZINESS [None]
  - RASH ERYTHEMATOUS [None]
  - SCAB [None]
  - RASH VESICULAR [None]
  - MENTAL STATUS CHANGES [None]
  - FEELING ABNORMAL [None]
